FAERS Safety Report 5458311-7 (Version None)
Quarter: 2007Q3

REPORT INFORMATION
  Report Type: 
  Country: None (occurrence: None)
  Receive Date: 20070919
  Receipt Date: 20070907
  Transmission Date: 20080115
  Serious: Yes (Hospitalization)
  Sender: FDA-Public Use
  Company Number: IT-AVENTIS-200716171GDDC

PATIENT
  Age: 59 Year
  Sex: Male

DRUGS (5)
  1. TAXOTERE [Suspect]
     Indication: GASTRIC CANCER
     Route: 042
     Dates: start: 20070530, end: 20070530
  2. DILATREND [Suspect]
     Route: 048
  3. MEPRAL                             /00661201/ [Concomitant]
     Indication: PROPHYLAXIS
     Route: 048
  4. FERRO-GRAD [Concomitant]
     Route: 048
  5. ENAPREN [Concomitant]
     Route: 048

REACTIONS (3)
  - DRUG INTERACTION [None]
  - HYPOTENSION [None]
  - LOSS OF CONSCIOUSNESS [None]
